FAERS Safety Report 22130415 (Version 3)
Quarter: 2023Q2

REPORT INFORMATION
  Report Type: Spontaneous
  Country: US (occurrence: US)
  Receive Date: 20230323
  Receipt Date: 20230502
  Transmission Date: 20230721
  Serious: Yes (Hospitalization, Other)
  Sender: FDA-Public Use
  Company Number: US-PFIZER INC-PV202300021409

PATIENT
  Age: 75 Year
  Sex: Female
  Weight: 59.4 kg

DRUGS (1)
  1. XELJANZ XR [Suspect]
     Active Substance: TOFACITINIB CITRATE
     Indication: Rheumatoid arthritis
     Dosage: 11 MG, 1X/DAY
     Route: 048
     Dates: start: 201711, end: 20221116

REACTIONS (1)
  - Squamous cell carcinoma of the vulva [Not Recovered/Not Resolved]

NARRATIVE: CASE EVENT DATE: 20221017
